FAERS Safety Report 4804865-0 (Version None)
Quarter: 2005Q4

REPORT INFORMATION
  Report Type: 
  Country: None (occurrence: None)
  Receive Date: 20051020
  Receipt Date: 20050916
  Transmission Date: 20060501
  Serious: Yes (Death, Other)
  Sender: FDA-Public Use
  Company Number: 2005UW13774

PATIENT
  Age: 87 Year
  Sex: Female
  Weight: 51.7 kg

DRUGS (21)
  1. SEROQUEL [Suspect]
     Dosage: 25 MG TITRATED TO 400 MG TID
     Route: 048
     Dates: start: 20050701
  2. DEPAKOTE [Concomitant]
  3. ESTRADIOL [Concomitant]
     Indication: VAGINAL INFECTION
  4. LEXAPRO [Concomitant]
     Indication: DEPRESSION
     Dosage: 10 ONE HALF DAILY
  5. OSCAL PLUS D [Concomitant]
  6. NAPROSYN [Concomitant]
     Indication: OSTEOARTHRITIS
  7. EXELON [Concomitant]
     Indication: DEMENTIA ALZHEIMER'S TYPE
     Dates: start: 20040323
  8. PRILOSEC OTC [Concomitant]
     Indication: PROPHYLAXIS
  9. TYLENOL (CAPLET) [Concomitant]
  10. TRAZODONE [Concomitant]
  11. COGENTIN [Concomitant]
  12. DULCOLAX [Concomitant]
  13. ATARAX [Concomitant]
     Indication: PRURITUS
  14. CIPRO [Concomitant]
     Indication: URINARY TRACT INFECTION
  15. PROBIOTICA [Concomitant]
  16. DIFLUCAN [Concomitant]
  17. LISINOPRIL [Concomitant]
     Indication: HYPERTENSION
  18. MULTI-VITAMINS [Concomitant]
     Route: 048
     Dates: start: 20040123
  19. LOTREL [Concomitant]
  20. RISPERDAL [Concomitant]
  21. ATIVAN [Concomitant]
     Dates: start: 20050803

REACTIONS (6)
  - CARDIO-RESPIRATORY ARREST [None]
  - HYPOTENSION [None]
  - OXYGEN SATURATION DECREASED [None]
  - RESPIRATORY FAILURE [None]
  - STUPOR [None]
  - TACHYCARDIA [None]
